APPROVED DRUG PRODUCT: CYANOCOBALAMIN
Active Ingredient: CYANOCOBALAMIN
Strength: 1MG/ML
Dosage Form/Route: INJECTABLE;INJECTION
Application: A087969 | Product #001
Applicant: EPIC PHARMA LLC
Approved: Nov 10, 1983 | RLD: No | RS: No | Type: DISCN